FAERS Safety Report 7829292-3 (Version None)
Quarter: 2011Q4

REPORT INFORMATION
  Report Type: 
  Country: None (occurrence: None)
  Receive Date: 20111020
  Receipt Date: 20111018
  Transmission Date: 20120403
  Serious: Yes (Hospitalization)
  Sender: FDA-Public Use
  Company Number: US-CEPHALON-2011000213

PATIENT
  Sex: Male
  Weight: 86 kg

DRUGS (5)
  1. TREANDA [Suspect]
     Indication: B-CELL LYMPHOMA
     Route: 042
     Dates: start: 20100922, end: 20101215
  2. CIPROFLOXACIN [Concomitant]
     Dates: start: 20100111
  3. OFATUMUMAB [Suspect]
     Indication: B-CELL LYMPHOMA
     Route: 042
     Dates: start: 20100922, end: 20101214
  4. ACYCLOVIR [Concomitant]
     Dates: start: 20101218
  5. BACTRIM [Concomitant]
     Dates: start: 20101218

REACTIONS (2)
  - TOOTH ABSCESS [None]
  - FEBRILE NEUTROPENIA [None]
